FAERS Safety Report 4603111-0 (Version None)
Quarter: 2005Q1

REPORT INFORMATION
  Report Type: 
  Country: None (occurrence: None)
  Receive Date: 20050309
  Receipt Date: 20050222
  Transmission Date: 20050727
  Serious: Yes (Other)
  Sender: FDA-Public Use
  Company Number: US-GLAXOSMITHKLINE-A0547043A

PATIENT
  Age: 91 Year
  Sex: Female

DRUGS (1)
  1. CITRUCEL REGULAR SUSPENSION [Suspect]
     Indication: ILL-DEFINED DISORDER
     Route: 048
     Dates: start: 20040901

REACTIONS (3)
  - ABNORMAL FAECES [None]
  - DIARRHOEA [None]
  - FAECAL INCONTINENCE [None]
